FAERS Safety Report 11867152 (Version 1)
Quarter: 2015Q4

REPORT INFORMATION
  Report Type: Spontaneous
  Country: NL (occurrence: NL)
  Receive Date: 20151224
  Receipt Date: 20151224
  Transmission Date: 20160305
  Serious: Yes (Life-Threatening, Disabling)
  Sender: FDA-Public Use
  Company Number: NL-JNJFOC-20151219577

PATIENT
  Age: 18 Year
  Sex: Male
  Weight: 130 kg

DRUGS (2)
  1. RISPERDAL [Suspect]
     Active Substance: RISPERIDONE
     Indication: SUSPICIOUSNESS
     Route: 048
     Dates: start: 20131030, end: 20150519
  2. ABILIFY [Suspect]
     Active Substance: ARIPIPRAZOLE
     Indication: SUSPICIOUSNESS
     Route: 048
     Dates: start: 20131030, end: 20150519

REACTIONS (5)
  - Off label use [Unknown]
  - Eye movement disorder [Not Recovered/Not Resolved]
  - Product use issue [Unknown]
  - Post-traumatic stress disorder [Not Recovered/Not Resolved]
  - Incorrect dose administered [Unknown]

NARRATIVE: CASE EVENT DATE: 20131030
